FAERS Safety Report 16710101 (Version 3)
Quarter: 2019Q3

REPORT INFORMATION
  Report Type: Spontaneous
  Country: US (occurrence: US)
  Receive Date: 20190816
  Receipt Date: 20190831
  Transmission Date: 20191004
  Serious: Yes (Hospitalization)
  Sender: FDA-Public Use
  Company Number: US-UNITED THERAPEUTICS-UNT-2019-013665

PATIENT
  Age: 53 Year
  Sex: Female

DRUGS (2)
  1. REMODULIN [Suspect]
     Active Substance: TREPROSTINIL
     Indication: PULMONARY ARTERIAL HYPERTENSION
     Dosage: 0.0275? ?G/KG, CONTINUING
     Route: 058
     Dates: start: 20190528
  2. REMODULIN [Suspect]
     Active Substance: TREPROSTINIL
     Dosage: 0.0295? ?G/KG, CONTINUING
     Route: 058
     Dates: start: 20190601

REACTIONS (2)
  - Infusion site infection [Unknown]
  - Fluid overload [Unknown]

NARRATIVE: CASE EVENT DATE: 201908
